FAERS Safety Report 11122315 (Version 1)
Quarter: 2015Q2

REPORT INFORMATION
  Report Type: Spontaneous
  Country: US (occurrence: None)
  Receive Date: 20150518
  Receipt Date: 20150518
  Transmission Date: 20150821
  Serious: No
  Sender: FDA-Public Use
  Company Number: None

PATIENT
  Age: 64 Year
  Sex: Male
  Weight: 68.04 kg

DRUGS (5)
  1. ASPIRIN. [Concomitant]
     Active Substance: ASPIRIN
  2. METROPOPROLOL [Concomitant]
  3. BRILINTA [Suspect]
     Active Substance: TICAGRELOR
     Indication: MYOCARDIAL INFARCTION
     Route: 048
     Dates: start: 20150409, end: 20150512
  4. LIPOTOR [Concomitant]
  5. IRBESARTIN [Concomitant]

REACTIONS (3)
  - Abnormal dreams [None]
  - Nightmare [None]
  - Insomnia [None]

NARRATIVE: CASE EVENT DATE: 20150411
